FAERS Safety Report 7438171-5 (Version None)
Quarter: 2011Q2

REPORT INFORMATION
  Report Type: 
  Country: None (occurrence: None)
  Receive Date: 20110426
  Receipt Date: 20101130
  Transmission Date: 20111010
  Serious: Yes (Hospitalization, Other)
  Sender: FDA-Public Use
  Company Number: US-BAYER-201026863NA

PATIENT
  Age: 39 Year
  Sex: Female
  Weight: 56.689 kg

DRUGS (4)
  1. MIRALAX [Concomitant]
  2. LORTAB [Concomitant]
  3. YASMIN [Suspect]
     Indication: PRODUCT USED FOR UNKNOWN INDICATION
     Dosage: UNK
     Route: 048
     Dates: start: 20060401, end: 20060501
  4. CELEBREX [Concomitant]
     Dosage: 200 MG, UNK

REACTIONS (4)
  - CEREBRAL HAEMORRHAGE [None]
  - PAIN IN EXTREMITY [None]
  - VEIN DISORDER [None]
  - DEEP VEIN THROMBOSIS [None]
